FAERS Safety Report 5189927-3 (Version None)
Quarter: 2006Q4

REPORT INFORMATION
  Report Type: 
  Country: None (occurrence: None)
  Receive Date: 20061215
  Receipt Date: 20061206
  Transmission Date: 20070319
  Serious: Yes (Other)
  Sender: FDA-Public Use
  Company Number: 2006150188

PATIENT
  Age: 46 Year
  Sex: Female

DRUGS (3)
  1. MINOXIDIL [Suspect]
     Indication: ALOPECIA
     Dosage: 6 PUFFS PER DAY, TOPICAL
     Route: 061
     Dates: start: 20060601
  2. LEVOTHYROXINE SODIUM [Concomitant]
  3. FEMODENE (ETHINYLESTRADIOL, GESTODENE) [Concomitant]

REACTIONS (4)
  - EYE DISORDER [None]
  - RETINAL ARTERY OCCLUSION [None]
  - RETINAL INFARCTION [None]
  - VISUAL FIELD DEFECT [None]
